FAERS Safety Report 19060697 (Version 5)
Quarter: 2021Q3

REPORT INFORMATION
  Report Type: Spontaneous
  Country: US (occurrence: US)
  Receive Date: 20210326
  Receipt Date: 20210915
  Transmission Date: 20211014
  Serious: No
  Sender: FDA-Public Use
  Company Number: US-SA-2021SA101087

PATIENT
  Sex: Female

DRUGS (2)
  1. AUBAGIO [Suspect]
     Active Substance: TERIFLUNOMIDE
     Indication: PARAESTHESIA
     Dosage: 7 MG
     Route: 048
     Dates: start: 20200914
  2. AUBAGIO [Suspect]
     Active Substance: TERIFLUNOMIDE
     Indication: MULTIPLE SCLEROSIS
     Dosage: 7 MG
     Route: 048
     Dates: start: 20200903

REACTIONS (4)
  - Product dose omission issue [Unknown]
  - Somnolence [Unknown]
  - Product dose omission in error [Unknown]
  - Product use in unapproved indication [Unknown]
